FAERS Safety Report 10933114 (Version 2)
Quarter: 2015Q2

REPORT INFORMATION
  Report Type: Spontaneous
  Country: US (occurrence: US)
  Receive Date: 20150320
  Receipt Date: 20150415
  Transmission Date: 20150821
  Serious: Yes (Hospitalization, Other)
  Sender: FDA-Public Use
  Company Number: US-AMGEN-USASP2015024874

PATIENT
  Age: 72 Year
  Sex: Female

DRUGS (1)
  1. ENBREL [Suspect]
     Active Substance: ETANERCEPT
     Indication: PSORIASIS
     Dosage: 50 MG, QWK
     Route: 065
     Dates: start: 20041101, end: 20150303

REACTIONS (8)
  - Fall [Not Recovered/Not Resolved]
  - Squamous cell carcinoma of skin [Recovered/Resolved]
  - Wound secretion [Recovered/Resolved]
  - Impaired healing [Not Recovered/Not Resolved]
  - Wound infection [Recovered/Resolved]
  - Ankle fracture [Recovered/Resolved]
  - Psoriasis [Not Recovered/Not Resolved]
  - Staphylococcal infection [Recovered/Resolved]

NARRATIVE: CASE EVENT DATE: 201501
